FAERS Safety Report 18375147 (Version 2)
Quarter: 2021Q2

REPORT INFORMATION
  Report Type: Spontaneous
  Country: US (occurrence: US)
  Receive Date: 20201013
  Receipt Date: 20210430
  Transmission Date: 20210717
  Serious: Yes (Hospitalization, Other)
  Sender: FDA-Public Use
  Company Number: US-AMGEN-USASP2020163896

PATIENT
  Age: 66 Year
  Sex: Female
  Weight: 81.63 kg

DRUGS (15)
  1. ENBREL [Suspect]
     Active Substance: ETANERCEPT
     Indication: PRODUCT USED FOR UNKNOWN INDICATION
     Dosage: UNK
     Route: 065
     Dates: end: 2017
  2. PANTOPRAZOLE [Concomitant]
     Active Substance: PANTOPRAZOLE
     Indication: GASTROOESOPHAGEAL REFLUX DISEASE
  3. HYDROCHLOROTHIAZIDE. [Concomitant]
     Active Substance: HYDROCHLOROTHIAZIDE
     Indication: FLUID RETENTION
  4. SULFAZINE [Concomitant]
     Active Substance: SULFASALAZINE
     Indication: RHEUMATOID ARTHRITIS
     Dosage: UNK
  5. VITAMIN B12 [Concomitant]
     Active Substance: CYANOCOBALAMIN
  6. ENBREL [Suspect]
     Active Substance: ETANERCEPT
     Dosage: UNK
     Route: 065
  7. HUMIRA [Suspect]
     Active Substance: ADALIMUMAB
     Indication: RHEUMATOID ARTHRITIS
     Dosage: 40 MILLIGRAM, Q2WK
     Route: 058
     Dates: start: 2017, end: 201906
  8. HUMIRA [Suspect]
     Active Substance: ADALIMUMAB
     Dosage: 40 MILLIGRAM, Q2WK
     Route: 058
     Dates: start: 201906, end: 2019
  9. FEXOFENADINE [Concomitant]
     Active Substance: FEXOFENADINE HYDROCHLORIDE
     Indication: MULTIPLE ALLERGIES
     Dosage: UNK
  10. HUMIRA [Suspect]
     Active Substance: ADALIMUMAB
     Dosage: 40 MILLIGRAM, Q2WK
     Route: 058
     Dates: start: 202001, end: 202003
  11. COMPAZINE [PROCHLORPERAZINE EDISYLATE] [Concomitant]
     Active Substance: PROCHLORPERAZINE EDISYLATE
     Indication: RHEUMATOID ARTHRITIS
     Dosage: UNK
  12. POTASSIUM [Concomitant]
     Active Substance: POTASSIUM
  13. VITAMIN D [COLECALCIFEROL] [Concomitant]
     Active Substance: CHOLECALCIFEROL
  14. HUMIRA [Suspect]
     Active Substance: ADALIMUMAB
     Dosage: 40 MILLIGRAM, Q2WK
     Route: 058
     Dates: start: 202003, end: 202012
  15. ETODOLAC. [Concomitant]
     Active Substance: ETODOLAC
     Indication: RHEUMATOID ARTHRITIS

REACTIONS (9)
  - Cough [Recovered/Resolved]
  - Dysphonia [Unknown]
  - Arthritis [Recovered/Resolved]
  - Drug ineffective [Unknown]
  - Lymphadenopathy [Not Recovered/Not Resolved]
  - Gait inability [Unknown]
  - Pneumonia [Unknown]
  - Osteoarthritis [Recovered/Resolved]
  - Sinusitis [Recovering/Resolving]

NARRATIVE: CASE EVENT DATE: 201906
